FAERS Safety Report 24390045 (Version 2)
Quarter: 2025Q2

REPORT INFORMATION
  Report Type: Report from Study
  Country: BR (occurrence: BR)
  Receive Date: 20241003
  Receipt Date: 20250518
  Transmission Date: 20250716
  Serious: Yes (Other)
  Sender: JOHNSON AND JOHNSON
  Company Number: BR-JNJFOC-20240970294

PATIENT
  Age: 64 Year
  Sex: Female

DRUGS (5)
  1. REMICADE [Suspect]
     Active Substance: INFLIXIMAB
     Indication: Rheumatoid arthritis
     Dosage: 5 DOSES
     Route: 041
     Dates: start: 202009, end: 2021
  2. REMICADE [Suspect]
     Active Substance: INFLIXIMAB
     Indication: Fibromyalgia
  3. REMICADE [Suspect]
     Active Substance: INFLIXIMAB
     Indication: Colitis ulcerative
  4. METHOTREXATE [Concomitant]
     Active Substance: METHOTREXATE
     Indication: Rheumatoid arthritis
  5. BILASTINE [Concomitant]
     Active Substance: BILASTINE
     Indication: Product used for unknown indication

REACTIONS (9)
  - Drug hypersensitivity [Unknown]
  - Rheumatoid arthritis [Recovering/Resolving]
  - Colitis ulcerative [Not Recovered/Not Resolved]
  - Diabetes mellitus [Unknown]
  - Infusion related reaction [Unknown]
  - Lung disorder [Unknown]
  - Depression [Not Recovered/Not Resolved]
  - Cardiac disorder [Unknown]
  - Memory impairment [Unknown]
